FAERS Safety Report 5296025-7 (Version None)
Quarter: 2007Q2

REPORT INFORMATION
  Report Type: 
  Country: None (occurrence: None)
  Receive Date: 20070413
  Receipt Date: 20070409
  Transmission Date: 20071010
  Serious: Yes (Hospitalization)
  Sender: FDA-Public Use
  Company Number: US-GENENTECH-239660

PATIENT
  Sex: Male
  Weight: 68.934 kg

DRUGS (5)
  1. AVASTIN [Suspect]
     Indication: SQUAMOUS CELL CARCINOMA
     Dosage: 350 MG, QOW
     Route: 042
     Dates: start: 20061222
  2. DOCETAXEL [Suspect]
     Indication: SQUAMOUS CELL CARCINOMA
     Dosage: 35 MG, 1/WEEK
     Route: 042
     Dates: start: 20061222
  3. PRILOSEC [Concomitant]
     Indication: DRUG USE FOR UNKNOWN INDICATION
  4. SENOKOT [Concomitant]
     Indication: DRUG USE FOR UNKNOWN INDICATION
  5. ROXICET [Concomitant]
     Indication: DRUG USE FOR UNKNOWN INDICATION

REACTIONS (1)
  - CHOLELITHIASIS [None]
